FAERS Safety Report 4869454-0 (Version None)
Quarter: 2005Q4

REPORT INFORMATION
  Report Type: 
  Country: None (occurrence: None)
  Receive Date: 20051230
  Receipt Date: 20050920
  Transmission Date: 20060501
  Serious: Yes (Hospitalization)
  Sender: FDA-Public Use
  Company Number: US-MERCK-0509USA03013

PATIENT
  Age: 75 Year
  Sex: Female
  Weight: 58 kg

DRUGS (11)
  1. VIOXX [Suspect]
     Indication: ARTHRALGIA
     Route: 048
     Dates: start: 20020401, end: 20040602
  2. LIPITOR [Concomitant]
     Route: 065
  3. PLAVIX [Concomitant]
     Route: 065
  4. PREMARIN [Concomitant]
     Route: 065
  5. CENTRUM SILVER [Concomitant]
     Route: 065
  6. ZOCOR [Concomitant]
     Route: 065
  7. LEVAQUIN [Concomitant]
     Route: 065
  8. PREVACID [Concomitant]
     Route: 065
  9. FOSAMAX [Concomitant]
     Route: 065
  10. ASPIRIN [Concomitant]
     Route: 065
  11. TYLENOL [Concomitant]
     Route: 065

REACTIONS (11)
  - ANGINA PECTORIS [None]
  - CEREBRAL INFARCTION [None]
  - DIZZINESS [None]
  - HERPES ZOSTER [None]
  - HYPERLIPIDAEMIA [None]
  - INTRACRANIAL ANEURYSM [None]
  - PALPITATIONS [None]
  - THALAMIC INFARCTION [None]
  - TIBIA FRACTURE [None]
  - TRANSIENT ISCHAEMIC ATTACK [None]
  - URINARY TRACT INFECTION [None]
